FAERS Safety Report 16000778 (Version 1)
Quarter: 2019Q1

REPORT INFORMATION
  Report Type: Spontaneous
  Country: FR (occurrence: FR)
  Receive Date: 20190225
  Receipt Date: 20190225
  Transmission Date: 20190418
  Serious: Yes (Other)
  Sender: FDA-Public Use
  Company Number: FR-PFIZER INC-2019076948

PATIENT
  Age: 71 Year
  Sex: Female

DRUGS (3)
  1. TRAMADOL SANDOZ [Interacting]
     Active Substance: TRAMADOL
     Indication: PAIN
     Dosage: 100 MG, 2X/DAY (IN MORNING AND EVENING)
     Route: 065
     Dates: start: 2018
  2. TRAMADOL SANDOZ [Interacting]
     Active Substance: TRAMADOL
     Dosage: 50 MG, 1X/DAY (AT NOON)
     Route: 065
  3. VENLAFAXINE HCL [Suspect]
     Active Substance: VENLAFAXINE HYDROCHLORIDE
     Indication: DEPRESSION
     Dosage: UNK
     Route: 065

REACTIONS (4)
  - Myalgia [Unknown]
  - Arrhythmia [Unknown]
  - Drug interaction [Unknown]
  - Pain [Unknown]
